FAERS Safety Report 7520355-9 (Version None)
Quarter: 2011Q2

REPORT INFORMATION
  Report Type: 
  Country: None (occurrence: None)
  Receive Date: 20110602
  Receipt Date: 20110524
  Transmission Date: 20111010
  Serious: Yes (Hospitalization)
  Sender: FDA-Public Use
  Company Number: PHHY2011US44316

PATIENT
  Age: 16 Year
  Sex: Male

DRUGS (4)
  1. CEFOXITIN [Suspect]
     Dosage: 12 G, UNK
  2. VANCOMYCIN [Suspect]
     Route: 042
  3. PIPERACILLIN AND TAZOBACTAM [Suspect]
  4. TOBRAMYCIN [Suspect]
     Dosage: 7.2 MG, UNK

REACTIONS (5)
  - RENAL FAILURE ACUTE [None]
  - HYPOTENSION [None]
  - BLOOD UREA INCREASED [None]
  - DRUG LEVEL INCREASED [None]
  - BLOOD CREATININE INCREASED [None]
